FAERS Safety Report 24438727 (Version 1)
Quarter: 2024Q4

REPORT INFORMATION
  Report Type: Spontaneous
  Country: CN (occurrence: CN)
  Receive Date: 20241015
  Receipt Date: 20241015
  Transmission Date: 20250115
  Serious: Yes (Life-Threatening, Hospitalization, Disabling)
  Sender: Haleon PLC
  Company Number: CN-HALEON-2201412

PATIENT
  Age: 55 Year
  Sex: Female
  Weight: 62 kg

DRUGS (2)
  1. DICLOFENAC SODIUM [Suspect]
     Active Substance: DICLOFENAC SODIUM
     Indication: Pain
     Route: 048
     Dates: start: 20240912, end: 20240915
  2. LOXOPROFEN SODIUM [Suspect]
     Active Substance: LOXOPROFEN SODIUM
     Indication: Intervertebral disc protrusion
     Dosage: ROUTE OF ADMINISTRATION: EXTERNAL
     Dates: start: 20240912, end: 20240915

REACTIONS (4)
  - Platelet count decreased [Recovered/Resolved]
  - Oral blood blister [Recovered/Resolved]
  - Mouth haemorrhage [Recovered/Resolved]
  - Purpura [Recovered/Resolved]

NARRATIVE: CASE EVENT DATE: 20240915
